FAERS Safety Report 9089215 (Version 1)
Quarter: 2013Q1

REPORT INFORMATION
  Report Type: Spontaneous
  Country: GB (occurrence: GB)
  Receive Date: 20130218
  Receipt Date: 20130218
  Transmission Date: 20140127
  Serious: Yes (Hospitalization)
  Sender: FDA-Public Use
  Company Number: GB-MYLANLABS-2013S1002834

PATIENT
  Age: 2 Year
  Sex: Female
  Weight: 12 kg

DRUGS (1)
  1. SODIUM VALPROATE [Suspect]
     Indication: ACCIDENTAL OVERDOSE
     Dosage: ESTIMATED 4G (330MG/KG)
     Route: 048

REACTIONS (4)
  - Accidental overdose [Recovering/Resolving]
  - Electrocardiogram QT prolonged [Recovered/Resolved]
  - Depressed level of consciousness [Recovering/Resolving]
  - Toxicity to various agents [Recovered/Resolved]
